FAERS Safety Report 10390061 (Version 1)
Quarter: 2014Q1

REPORT INFORMATION
  Report Type: Spontaneous
  Country: US (occurrence: None)
  Receive Date: 20140306
  Receipt Date: 20140306
  Transmission Date: 20141002
  Serious: Yes (Other)
  Sender: FDA-Public Use
  Company Number: 163-21880-13012609

PATIENT
  Age: 69 Year
  Sex: Male
  Weight: 95.26 kg

DRUGS (11)
  1. REVLIMID [Suspect]
     Indication: PLASMA CELL MYELOMA
     Route: 048
     Dates: start: 20120813
  2. BUPROPION HCL (BUPROPION HYDROCHLORIDE) [Concomitant]
  3. CREON (PANCREATIN) [Concomitant]
  4. DEXAMETHASONE [Concomitant]
  5. FISH OIL [Concomitant]
  6. FLOMAX (TAMSULOSIN HYDROCHLORIDE) [Concomitant]
  7. HUMALOG (INSUNLIN LISPRO) [Concomitant]
  8. LANTUS (INSULIN GLARGINE) [Concomitant]
  9. METOCLOPRAMIDE HCL (METOCLOPRAMIDE HYDROCHLORIDE) [Concomitant]
  10. MULTIVITAMINS [Concomitant]
  11. ASPIRIN (ACETYLSALICYLIC ACID) [Concomitant]

REACTIONS (1)
  - Thrombosis [None]
